FAERS Safety Report 22283150 (Version 1)
Quarter: 2023Q2

REPORT INFORMATION
  Report Type: Spontaneous
  Country: PL (occurrence: None)
  Receive Date: 20230504
  Receipt Date: 20230504
  Transmission Date: 20230721
  Serious: Yes (Other)
  Sender: FDA-Public Use
  Company Number: PL-ROCHE-3343158

PATIENT
  Sex: Male

DRUGS (1)
  1. TECENTRIQ [Suspect]
     Active Substance: ATEZOLIZUMAB
     Indication: Non-small cell lung cancer
     Dosage: ON AN UNKNOWN DATE IN MAR/2023, MOST RECENT DOSE WAS ADMINISTERED.
     Route: 065
     Dates: start: 20201009

REACTIONS (1)
  - Lymphadenopathy [Unknown]
